FAERS Safety Report 15612697 (Version 1)
Quarter: 2018Q4

REPORT INFORMATION
  Report Type: Spontaneous
  Country: JP (occurrence: JP)
  Receive Date: 20181113
  Receipt Date: 20181113
  Transmission Date: 20190205
  Serious: Yes (Other)
  Sender: FDA-Public Use
  Company Number: JP-AVADEL LEGACY PHARMACEUTICALS, LLC-2018AVA00458

PATIENT
  Age: 80 Year
  Sex: Female
  Weight: 52 kg

DRUGS (16)
  1. ROCURONIUM [Concomitant]
     Active Substance: ROCURONIUM BROMIDE
     Indication: GENERAL ANAESTHESIA
     Dosage: 50 MG, ONCE
     Route: 065
  2. PROPOFOL. [Concomitant]
     Active Substance: PROPOFOL
     Indication: GENERAL ANAESTHESIA
     Dosage: 50 MG, ONCE
     Route: 065
  3. FENTANYL. [Concomitant]
     Active Substance: FENTANYL
     Indication: GENERAL ANAESTHESIA
     Dosage: 100 ?G, ONCE
     Route: 065
  4. DESFLURANE. [Concomitant]
     Active Substance: DESFLURANE
     Indication: GENERAL ANAESTHESIA
     Dosage: 4 %
     Route: 065
  5. EPHEDRINE SULFATE. [Suspect]
     Active Substance: EPHEDRINE SULFATE
     Indication: HYPOTENSION
     Dosage: 4 MG, ONCE
     Route: 065
  6. MIDAZOLAM [Concomitant]
     Active Substance: MIDAZOLAM HYDROCHLORIDE
     Dosage: 3 MG, ONCE
     Route: 065
  7. EPHEDRINE SULFATE. [Suspect]
     Active Substance: EPHEDRINE SULFATE
     Dosage: 2 MG, ONCE
     Route: 065
  8. LIDOCAINE. [Concomitant]
     Active Substance: LIDOCAINE
     Route: 065
  9. ROCURONIUM [Concomitant]
     Active Substance: ROCURONIUM BROMIDE
     Dosage: 40 UNK
     Route: 065
  10. PHENYLEPHRINE [Suspect]
     Active Substance: PHENYLEPHRINE\PHENYLEPHRINE HYDROCHLORIDE
     Dosage: 0.1 MG, ONCE
     Route: 065
  11. CANDESARTAN. [Concomitant]
     Active Substance: CANDESARTAN
     Route: 065
  12. MIDAZOLAM [Concomitant]
     Active Substance: MIDAZOLAM HYDROCHLORIDE
     Dosage: 5 UNK
     Route: 065
  13. FENTANYL. [Concomitant]
     Active Substance: FENTANYL
     Dosage: 3 BOLUSES UP TO 150 ?G
  14. PHENYLEPHRINE [Suspect]
     Active Substance: PHENYLEPHRINE\PHENYLEPHRINE HYDROCHLORIDE
     Indication: HYPOTENSION
     Dosage: 0.1 MG, ONCE
     Route: 065
  15. LEVOTHYROXINE. [Concomitant]
     Active Substance: LEVOTHYROXINE
     Route: 065
  16. FENTANYL. [Concomitant]
     Active Substance: FENTANYL
     Dosage: 150 UNK
     Route: 065

REACTIONS (1)
  - Arteriospasm coronary [Recovered/Resolved]
